FAERS Safety Report 6773247-7 (Version None)
Quarter: 2010Q2

REPORT INFORMATION
  Report Type: 
  Country: None (occurrence: None)
  Receive Date: 20100616
  Receipt Date: 20100315
  Transmission Date: 20101027
  Serious: No
  Sender: FDA-Public Use
  Company Number: US-ABBOTT-10P-163-0633064-00

PATIENT
  Sex: Female

DRUGS (6)
  1. TRILIPIX [Suspect]
     Indication: BLOOD CHOLESTEROL INCREASED
     Dates: start: 20100222, end: 20100311
  2. DIOVAN [Concomitant]
     Indication: HYPERTENSION
  3. FLAX SEED [Concomitant]
     Indication: DRUG USE FOR UNKNOWN INDICATION
  4. POTASSIUM [Concomitant]
     Indication: DRUG USE FOR UNKNOWN INDICATION
  5. ASPIRIN [Concomitant]
     Indication: DRUG USE FOR UNKNOWN INDICATION
  6. CO-Q 10 [Concomitant]
     Indication: DRUG USE FOR UNKNOWN INDICATION

REACTIONS (1)
  - PAIN IN EXTREMITY [None]
